FAERS Safety Report 6639139-9 (Version None)
Quarter: 2010Q1

REPORT INFORMATION
  Report Type: 
  Country: None (occurrence: None)
  Receive Date: 20100312
  Receipt Date: 20100228
  Transmission Date: 20100710
  Serious: Yes (Death)
  Sender: FDA-Public Use
  Company Number: GB-DEXPHARM-20100234

PATIENT
  Age: 24 Day
  Sex: Female

DRUGS (1)
  1. CHLORAPREP ACTIVE SUBSTANCES: CHLORHEXIDINE GLUCONATE; CHLORHEXIDINE G [Suspect]
     Indication: PROPHYLAXIS
     Dosage: DOSE: 1 DF DOSAGE FORM TOPICAL
     Route: 061
     Dates: start: 20091225, end: 20091225

REACTIONS (6)
  - BRONCHOPULMONARY DYSPLASIA [None]
  - ERYTHEMA [None]
  - EXCORIATION [None]
  - SKIN DISORDER [None]
  - SKIN EXFOLIATION [None]
  - STAPHYLOCOCCAL INFECTION [None]
